FAERS Safety Report 5204397-4 (Version None)
Quarter: 2007Q1

REPORT INFORMATION
  Report Type: 
  Country: None (occurrence: None)
  Receive Date: 20070110
  Receipt Date: 20060315
  Transmission Date: 20070707
  Serious: No
  Sender: FDA-Public Use
  Company Number: US-BRISTOL-MYERS SQUIBB COMPANY-13316773

PATIENT
  Age: 14 Year
  Sex: Female
  Weight: 106 kg

DRUGS (5)
  1. ABILIFY [Suspect]
     Indication: ABNORMAL BEHAVIOUR
     Dates: start: 20040524
  2. ABILIFY [Suspect]
     Indication: AGGRESSION
     Dates: start: 20040524
  3. CLONIDINE [Concomitant]
  4. CARBATROL [Concomitant]
  5. TRILEPTAL [Concomitant]
     Dosage: DOSAGE: 300-600 MG

REACTIONS (1)
  - WEIGHT INCREASED [None]
